FAERS Safety Report 5074820-7 (Version None)
Quarter: 2006Q3

REPORT INFORMATION
  Report Type: 
  Country: None (occurrence: None)
  Receive Date: 20060809
  Receipt Date: 20060731
  Transmission Date: 20061208
  Serious: Yes (Other)
  Sender: FDA-Public Use
  Company Number: CA-SOLVAY-00206002460

PATIENT
  Sex: Female

DRUGS (1)
  1. UTROGESTAN [Suspect]
     Indication: ILL-DEFINED DISORDER
     Dosage: DAILY DOSE:  UNKNOWN
     Route: 067

REACTIONS (3)
  - ASCITES [None]
  - CAPILLARY LEAK SYNDROME [None]
  - DRUG ADMINISTRATION ERROR [None]
